FAERS Safety Report 8770356 (Version 1)
Quarter: 2012Q4

REPORT INFORMATION
  Report Type: 
  Country: US (occurrence: US)
  Receive Date: 20120906
  Receipt Date: 20120906
  Transmission Date: 20130627
  Serious: Yes (Other)
  Sender: FDA-Public Use
  Company Number: US-JNJFOC-20120812337

PATIENT
  Sex: Male
  Weight: 132.9 kg

DRUGS (11)
  1. DURAGESIC [Suspect]
     Indication: BACK PAIN
     Route: 062
  2. DURAGESIC [Suspect]
     Indication: BACK PAIN
     Route: 062
  3. DURAGESIC [Suspect]
     Indication: BACK PAIN
     Route: 062
     Dates: end: 201207
  4. ATENOLOL [Suspect]
     Indication: BLOOD PRESSURE
     Route: 048
  5. CITALOPRAM [Concomitant]
     Indication: ANXIETY
     Route: 048
     Dates: start: 2004
  6. OMEPRAZOLE [Concomitant]
     Indication: GASTROOESOPHAGEAL REFLUX DISEASE
     Route: 048
     Dates: start: 2004
  7. CETIRIZINE [Concomitant]
     Indication: MULTIPLE ALLERGIES
     Route: 048
     Dates: start: 2003
  8. IBUPROFEN [Concomitant]
     Indication: HEADACHE
     Dosage: 1-2 tablets as needed upto every 8 hrs
     Route: 048
     Dates: start: 2003
  9. PREZISTA [Concomitant]
     Indication: HIV INFECTION
     Route: 048
     Dates: start: 2000
  10. TRUVADA [Concomitant]
     Indication: HIV INFECTION
     Route: 048
     Dates: start: 2000
  11. NORVIR [Concomitant]
     Indication: HIV INFECTION
     Route: 048
     Dates: start: 2000

REACTIONS (4)
  - Hypertension [Recovering/Resolving]
  - Hyperthyroidism [Recovering/Resolving]
  - Withdrawal syndrome [Recovered/Resolved]
  - Therapeutic response decreased [Not Recovered/Not Resolved]
